FAERS Safety Report 7908391-1 (Version None)
Quarter: 2011Q4

REPORT INFORMATION
  Report Type: 
  Country: None (occurrence: None)
  Receive Date: 20111111
  Receipt Date: 20111107
  Transmission Date: 20120403
  Serious: Yes (Death, Hospitalization, Disabling)
  Sender: FDA-Public Use
  Company Number: JP-JNJFOC-20110606287

PATIENT
  Sex: Female
  Weight: 58 kg

DRUGS (50)
  1. MAGMITT [Concomitant]
     Indication: CONSTIPATION
     Route: 048
  2. MAXIPIME [Concomitant]
     Route: 042
     Dates: start: 20100129, end: 20100130
  3. DEXALTIN [Concomitant]
     Route: 061
     Dates: start: 20100416, end: 20100727
  4. POTASSIUM CHLORIDE [Concomitant]
     Indication: DECREASED APPETITE
     Route: 041
     Dates: start: 20100126, end: 20100126
  5. PYRIDOXINE HCL [Concomitant]
     Route: 048
     Dates: start: 20100627
  6. PRIMPERAN TAB [Concomitant]
     Route: 042
     Dates: start: 20100920, end: 20100921
  7. DEXALTIN [Concomitant]
     Route: 061
     Dates: start: 20100205, end: 20100224
  8. DOXORUBICIN HCL [Suspect]
     Dosage: CYCLE 1
     Route: 042
     Dates: start: 20100122, end: 20100122
  9. SODIUM BICARBONATE [Concomitant]
     Route: 049
     Dates: start: 20100209, end: 20100224
  10. FELBINAC [Concomitant]
     Indication: MYALGIA
     Route: 062
     Dates: start: 20100308, end: 20100314
  11. GLYCERINE [Concomitant]
     Indication: STOMATITIS
     Route: 049
     Dates: start: 20100227, end: 20100324
  12. ROHYPNOL [Concomitant]
     Route: 048
     Dates: start: 20100414
  13. DOXORUBICIN HCL [Suspect]
     Indication: OVARIAN CANCER RECURRENT
     Dosage: CYCLE 6
     Route: 042
     Dates: start: 20100623, end: 20100623
  14. DAI-KENCHU-TO [Concomitant]
     Indication: CONSTIPATION
     Route: 048
  15. NEO-MERCAZOLE TAB [Concomitant]
     Route: 048
     Dates: start: 20100402
  16. AZUNOL [Concomitant]
     Indication: PROPHYLAXIS
     Dosage: Q.S
     Route: 049
     Dates: start: 20091222
  17. DEXALTIN [Concomitant]
     Indication: STOMATITIS
     Route: 061
     Dates: start: 20100302, end: 20100330
  18. SODIUM BICARBONATE [Concomitant]
     Indication: PROPHYLAXIS
     Route: 049
     Dates: start: 20100331
  19. FLORID D [Concomitant]
     Indication: ORAL CANDIDIASIS
     Dosage: Q.S.
     Route: 049
     Dates: start: 20100212, end: 20100224
  20. WHITE PETROLATUM [Concomitant]
     Indication: PALMAR-PLANTAR ERYTHRODYSAESTHESIA SYNDROME
     Dosage: Q.S.
     Route: 061
     Dates: start: 20100309, end: 20100621
  21. GLYCERINE [Concomitant]
     Route: 049
     Dates: start: 20100209, end: 20100224
  22. ALLOID G [Concomitant]
     Route: 048
     Dates: start: 20100514, end: 20100628
  23. DOXORUBICIN HCL [Suspect]
     Dosage: CYCLE 5
     Route: 042
     Dates: start: 20100526, end: 20100526
  24. PURSENNID [Concomitant]
     Indication: CONSTIPATION
     Route: 048
  25. NEO-MERCAZOLE TAB [Concomitant]
     Route: 048
     Dates: start: 20100205, end: 20100401
  26. GLYCERINE [Concomitant]
     Route: 049
     Dates: start: 20100227, end: 20100324
  27. DOXORUBICIN HCL [Suspect]
     Dosage: CYCLE 2
     Route: 042
     Dates: start: 20100226, end: 20100226
  28. NEO-MERCAZOLE TAB [Concomitant]
     Indication: BASEDOW'S DISEASE
     Route: 048
     Dates: end: 20100204
  29. SODIUM BICARBONATE [Concomitant]
     Indication: STOMATITIS
     Route: 049
     Dates: start: 20100227, end: 20100324
  30. SODIUM BICARBONATE [Concomitant]
     Route: 049
     Dates: start: 20100331
  31. SODIUM BICARBONATE [Concomitant]
     Route: 049
     Dates: start: 20100209, end: 20100224
  32. GLYCERINE [Concomitant]
     Route: 049
     Dates: start: 20100209, end: 20100224
  33. GLYCERINE [Concomitant]
     Indication: PROPHYLAXIS
     Route: 049
     Dates: start: 20100331
  34. PROMAC (POLAPREZINC) [Concomitant]
     Indication: PROPHYLAXIS
     Route: 048
     Dates: start: 20100804
  35. UFENAMATE [Concomitant]
     Dosage: Q.S.
     Route: 061
     Dates: start: 20100910, end: 20101014
  36. DOXORUBICIN HCL [Suspect]
     Dosage: CYCLE 4
     Route: 042
     Dates: start: 20100331, end: 20100331
  37. DOXORUBICIN HCL [Suspect]
     Route: 042
     Dates: start: 20100122
  38. DOXORUBICIN HCL [Suspect]
     Dosage: CYCLE 7
     Route: 042
     Dates: start: 20100729, end: 20100729
  39. RHYTHMY [Concomitant]
     Indication: INSOMNIA
     Route: 048
     Dates: end: 20100413
  40. MEROPENEM [Concomitant]
     Indication: PYREXIA
     Route: 042
     Dates: start: 20100202, end: 20100211
  41. MEROPENEM [Concomitant]
     Route: 042
     Dates: start: 20100201, end: 20100201
  42. GLYCERINE [Concomitant]
     Route: 049
     Dates: start: 20100331
  43. MOTILIUM [Concomitant]
     Indication: NAUSEA
     Route: 048
  44. DOXORUBICIN HCL [Suspect]
     Dosage: CYCLE 8
     Route: 042
     Dates: start: 20100902, end: 20100902
  45. DOXORUBICIN HCL [Suspect]
     Dosage: CYCLE 3
     Route: 042
     Dates: start: 20100428, end: 20100428
  46. MAXIPIME [Concomitant]
     Indication: PYREXIA
     Route: 042
     Dates: start: 20100201, end: 20100201
  47. AZUNOL [Concomitant]
     Indication: STOMATITIS
     Dosage: Q.S
     Route: 049
     Dates: start: 20091222
  48. SODIUM BICARBONATE [Concomitant]
     Route: 049
     Dates: start: 20100227, end: 20100324
  49. FLURBIPROFEN [Concomitant]
     Route: 042
     Dates: start: 20100920, end: 20100922
  50. GRAN [Concomitant]
     Route: 058
     Dates: start: 20100922, end: 20100923

REACTIONS (2)
  - ILEUS [None]
  - OVARIAN CANCER RECURRENT [None]
